FAERS Safety Report 5551442-2 (Version None)
Quarter: 2007Q4

REPORT INFORMATION
  Report Type: 
  Country: None (occurrence: None)
  Receive Date: 20071128
  Receipt Date: 20070417
  Transmission Date: 20080405
  Serious: Yes (Other)
  Sender: FDA-Public Use
  Company Number: 2007031816

PATIENT
  Age: 76 Year
  Sex: Male
  Weight: 69.09 kg

DRUGS (3)
  1. LIPITOR [Suspect]
     Indication: BLOOD CHOLESTEROL INCREASED
     Dosage: 10 MG (10 MG, 1 IN 1 D)
     Dates: start: 20061101
  2. VALSARTAN [Concomitant]
  3. ACETYLSALICYLIC ACID SRT [Concomitant]

REACTIONS (4)
  - ARTHRITIS [None]
  - FATIGUE [None]
  - MUSCULOSKELETAL PAIN [None]
  - MYALGIA [None]
